FAERS Safety Report 9825875 (Version 1)
Quarter: 2014Q1

REPORT INFORMATION
  Report Type: Spontaneous
  Country: AU (occurrence: AU)
  Receive Date: 20140117
  Receipt Date: 20140117
  Transmission Date: 20141002
  Serious: Yes (Other)
  Sender: FDA-Public Use
  Company Number: AU-SA-2014SA005803

PATIENT
  Age: 66 Year
  Sex: Male

DRUGS (1)
  1. BCG FOR IMMUNOTHERAPY [Suspect]
     Indication: BLADDER CANCER
     Route: 043

REACTIONS (6)
  - Bovine tuberculosis [Unknown]
  - Thrombocytopenia [Unknown]
  - Liver function test abnormal [Unknown]
  - Malaise [Unknown]
  - Pyrexia [Unknown]
  - Cough [Unknown]
